FAERS Safety Report 18808553 (Version 2)
Quarter: 2022Q2

REPORT INFORMATION
  Report Type: Spontaneous
  Country: US (occurrence: US)
  Receive Date: 20210129
  Receipt Date: 20220518
  Transmission Date: 20220720
  Serious: Yes (Other)
  Sender: FDA-Public Use
  Company Number: US-GLAXOSMITHKLINE-US2021GSK021587

PATIENT
  Sex: Female

DRUGS (21)
  1. RANITIDINE [Suspect]
     Active Substance: RANITIDINE
     Indication: Colitis ulcerative
     Dosage: 150 MG, QD
     Route: 065
     Dates: start: 198701, end: 200201
  2. RANITIDINE [Suspect]
     Active Substance: RANITIDINE
     Dosage: 150 MG, QD
     Route: 065
     Dates: start: 198701, end: 200201
  3. RANITIDINE [Suspect]
     Active Substance: RANITIDINE
     Dosage: UNK
  4. ZANTAC [Suspect]
     Active Substance: RANITIDINE HYDROCHLORIDE
     Indication: Colitis ulcerative
     Dosage: 150 MG, QD
     Route: 065
     Dates: start: 198701, end: 200201
  5. ZANTAC [Suspect]
     Active Substance: RANITIDINE HYDROCHLORIDE
     Dosage: 150 MG, QD
     Route: 065
     Dates: start: 198701, end: 200201
  6. ZANTAC [Suspect]
     Active Substance: RANITIDINE HYDROCHLORIDE
     Dosage: UNK
  7. ZANTAC [Suspect]
     Active Substance: RANITIDINE HYDROCHLORIDE
     Indication: Colitis ulcerative
     Dosage: 150 MG, QD
     Route: 065
     Dates: start: 198701, end: 200201
  8. ZANTAC [Suspect]
     Active Substance: RANITIDINE HYDROCHLORIDE
     Dosage: 150 MG, QD
     Route: 065
     Dates: start: 198701, end: 200201
  9. ZANTAC [Suspect]
     Active Substance: RANITIDINE HYDROCHLORIDE
     Dosage: UNK
  10. RANITIDINE [Suspect]
     Active Substance: RANITIDINE
     Indication: Colitis ulcerative
     Dosage: 150 MG, QD
     Route: 065
     Dates: start: 198701, end: 200201
  11. RANITIDINE [Suspect]
     Active Substance: RANITIDINE
     Dosage: 150 MG, QD
     Route: 065
     Dates: start: 198701, end: 200201
  12. RANITIDINE [Suspect]
     Active Substance: RANITIDINE
     Dosage: 150 MG, QD
     Route: 065
     Dates: start: 198701, end: 200201
  13. RANITIDINE [Suspect]
     Active Substance: RANITIDINE
     Indication: Colitis ulcerative
     Dosage: 150 MG, QD
     Route: 065
     Dates: start: 198701, end: 200201
  14. RANITIDINE [Suspect]
     Active Substance: RANITIDINE
     Dosage: 150 MG, QD
     Route: 065
     Dates: start: 198701, end: 200201
  15. RANITIDINE [Suspect]
     Active Substance: RANITIDINE
     Dosage: UNK
  16. RANITIDINE [Suspect]
     Active Substance: RANITIDINE
     Indication: Colitis ulcerative
     Dosage: 150 MG, QD
     Route: 065
     Dates: start: 198701, end: 200201
  17. RANITIDINE [Suspect]
     Active Substance: RANITIDINE
     Dosage: 150 MG, QD
     Route: 065
     Dates: start: 198701, end: 200201
  18. RANITIDINE [Suspect]
     Active Substance: RANITIDINE
     Dosage: UNK
  19. ZANTAC [Suspect]
     Active Substance: RANITIDINE HYDROCHLORIDE
     Indication: Colitis ulcerative
     Dosage: 150 MG, QD
     Route: 065
     Dates: start: 198701, end: 200201
  20. ZANTAC [Suspect]
     Active Substance: RANITIDINE HYDROCHLORIDE
     Dosage: UNK
  21. ZANTAC [Suspect]
     Active Substance: RANITIDINE HYDROCHLORIDE
     Dosage: UNK

REACTIONS (1)
  - Colon cancer [Unknown]
